FAERS Safety Report 6857123-7 (Version None)
Quarter: 2010Q3

REPORT INFORMATION
  Report Type: 
  Country: None (occurrence: None)
  Receive Date: 20100719
  Receipt Date: 20100715
  Transmission Date: 20110219
  Serious: Yes (Hospitalization)
  Sender: FDA-Public Use
  Company Number: B0665552A

PATIENT
  Sex: Male

DRUGS (1)
  1. AUGMENTIN '125' [Suspect]
     Indication: BRONCHITIS
     Route: 048
     Dates: start: 20100621, end: 20100621

REACTIONS (12)
  - ANAPHYLACTIC SHOCK [None]
  - EYE DISORDER [None]
  - FAECAL INCONTINENCE [None]
  - GRAND MAL CONVULSION [None]
  - HYPOTHERMIA [None]
  - ILL-DEFINED DISORDER [None]
  - LOSS OF CONSCIOUSNESS [None]
  - MALAISE [None]
  - PARAESTHESIA [None]
  - RASH [None]
  - TREMOR [None]
  - URINARY INCONTINENCE [None]
